FAERS Safety Report 5937856-7 (Version None)
Quarter: 2008Q4

REPORT INFORMATION
  Report Type: 
  Country: None (occurrence: None)
  Receive Date: 20081031
  Receipt Date: 20081023
  Transmission Date: 20090506
  Serious: Yes (Disabling, Congenital Anomaly, Other)
  Sender: FDA-Public Use
  Company Number: FR-ABBOTT-08P-056-0483642-00

PATIENT
  Sex: Male
  Weight: 2.97 kg

DRUGS (2)
  1. MICROPAKINE GRANULE [Suspect]
     Indication: DRUG EXPOSURE DURING PREGNANCY
     Route: 064
  2. FOLIC ACID [Concomitant]
     Indication: DRUG EXPOSURE DURING PREGNANCY
     Route: 064

REACTIONS (21)
  - ADENOIDECTOMY [None]
  - ASTHMA [None]
  - CONGENITAL FOOT MALFORMATION [None]
  - CYANOSIS [None]
  - DRUG EXPOSURE DURING PREGNANCY [None]
  - DYSMORPHISM [None]
  - EAR MALFORMATION [None]
  - EAR TUBE INSERTION [None]
  - ECZEMA [None]
  - ELECTROENCEPHALOGRAM ABNORMAL [None]
  - HYPERTELORISM OF ORBIT [None]
  - HYPERTONIA [None]
  - KYPHOSIS CONGENITAL [None]
  - LOSS OF CONSCIOUSNESS [None]
  - MALAISE [None]
  - NAEVUS FLAMMEUS [None]
  - PALLOR [None]
  - PSYCHOMOTOR RETARDATION [None]
  - SCOLIOSIS [None]
  - SPEECH DISORDER DEVELOPMENTAL [None]
  - TREMOR [None]
